FAERS Safety Report 5807230-2 (Version None)
Quarter: 2008Q3

REPORT INFORMATION
  Report Type: 
  Country: None (occurrence: None)
  Receive Date: 20080711
  Receipt Date: 20080704
  Transmission Date: 20090109
  Serious: Yes (Hospitalization)
  Sender: FDA-Public Use
  Company Number: D0058027A

PATIENT
  Sex: Female

DRUGS (1)
  1. VIANI 50-250 DISKUS [Suspect]
     Route: 055

REACTIONS (1)
  - HERPES VIRUS INFECTION [None]
